FAERS Safety Report 10130636 (Version 1)
Quarter: 2014Q2

REPORT INFORMATION
  Report Type: Spontaneous
  Country: US (occurrence: US)
  Receive Date: 20140428
  Receipt Date: 20140428
  Transmission Date: 20141212
  Serious: No
  Sender: FDA-Public Use
  Company Number: US-PFIZER INC-2014116732

PATIENT
  Age: 47 Year
  Sex: Female
  Weight: 59 kg

DRUGS (1)
  1. LYRICA [Suspect]
     Indication: ARACHNOIDITIS
     Dosage: 200 MG, 2X/DAY
     Dates: start: 2005, end: 20140424

REACTIONS (1)
  - Pain in extremity [Not Recovered/Not Resolved]
